FAERS Safety Report 18799324 (Version 1)
Quarter: 2021Q1

REPORT INFORMATION
  Report Type: Spontaneous
  Country: US (occurrence: US)
  Receive Date: 20210128
  Receipt Date: 20210128
  Transmission Date: 20210419
  Serious: Yes (Hospitalization)
  Sender: FDA-Public Use
  Company Number: US-MYLANLABS-2021M1004925

PATIENT
  Age: 7 Year
  Sex: Male

DRUGS (5)
  1. METHOTREXATE. [Suspect]
     Active Substance: METHOTREXATE
     Indication: CHRONIC RESPIRATORY DISEASE
     Dosage: UNK
     Route: 065
  2. AZATHIOPRINE. [Suspect]
     Active Substance: AZATHIOPRINE
     Indication: INFLAMMATION
  3. METHOTREXATE. [Suspect]
     Active Substance: METHOTREXATE
     Indication: INFLAMMATION
  4. AZATHIOPRINE. [Suspect]
     Active Substance: AZATHIOPRINE
     Indication: CHRONIC RESPIRATORY DISEASE
     Dosage: UNK
     Route: 065
  5. AMOXICILLIN. [Concomitant]
     Active Substance: AMOXICILLIN
     Indication: ANTIBIOTIC THERAPY
     Route: 065

REACTIONS (1)
  - Drug ineffective [Unknown]
